FAERS Safety Report 10145753 (Version 1)
Quarter: 2014Q2

REPORT INFORMATION
  Report Type: Spontaneous
  Country: US (occurrence: None)
  Receive Date: 20140430
  Receipt Date: 20140430
  Transmission Date: 20141212
  Serious: No
  Sender: FDA-Public Use
  Company Number: None

PATIENT
  Sex: Female

DRUGS (4)
  1. FORTEO 600MCG/2.4ML PEN ELI LILLY + COMPANY [Suspect]
     Dosage: 20MCG DAILY SUBQ
     Route: 058
     Dates: start: 20140212
  2. VITAMIN D3 [Concomitant]
  3. MULTIVITAMIN [Concomitant]
  4. PROBIOTIC [Concomitant]

REACTIONS (2)
  - Sinusitis [None]
  - Muscle spasms [None]
